FAERS Safety Report 23310831 (Version 1)
Quarter: 2023Q4

REPORT INFORMATION
  Report Type: Spontaneous
  Country: KR (occurrence: KR)
  Receive Date: 20231218
  Receipt Date: 20231218
  Transmission Date: 20240110
  Serious: Yes (Other)
  Sender: FDA-Public Use
  Company Number: None

PATIENT
  Age: 35 Year
  Sex: Male

DRUGS (3)
  1. MYCOPHENOLATE MOFETIL [Suspect]
     Active Substance: MYCOPHENOLATE MOFETIL
     Indication: Pyoderma gangrenosum
     Dosage: UNK
     Route: 065
  2. COLCHICINE [Concomitant]
     Active Substance: COLCHICINE
     Indication: Pyoderma gangrenosum
     Dosage: UNK
     Route: 065
  3. DAPSONE [Concomitant]
     Active Substance: DAPSONE
     Indication: Pyoderma gangrenosum
     Dosage: UNK
     Route: 065

REACTIONS (3)
  - Stenotrophomonas infection [Recovering/Resolving]
  - Corynebacterium infection [Recovering/Resolving]
  - Superinfection [Recovering/Resolving]
